FAERS Safety Report 6458063-8 (Version None)
Quarter: 2009Q4

REPORT INFORMATION
  Report Type: 
  Country: None (occurrence: None)
  Receive Date: 20091125
  Receipt Date: 20091118
  Transmission Date: 20100525
  Serious: Yes (Other)
  Sender: FDA-Public Use
  Company Number: US-AMGEN-TCS347258

PATIENT
  Sex: Male

DRUGS (1)
  1. ENBREL [Suspect]
     Indication: PSORIASIS
     Route: 058
     Dates: start: 20081201

REACTIONS (3)
  - ABDOMINAL PAIN LOWER [None]
  - PERIPHERAL ARTERY ANEURYSM [None]
  - RENAL DISORDER [None]
